FAERS Safety Report 18642492 (Version 1)
Quarter: 2020Q4

REPORT INFORMATION
  Report Type: Spontaneous
  Country: US (occurrence: US)
  Receive Date: 20201218
  Receipt Date: 20201218
  Transmission Date: 20210114
  Serious: No
  Sender: FDA-Public Use
  Company Number: None

PATIENT
  Age: 51 Year
  Sex: Female
  Weight: 89.1 kg

DRUGS (16)
  1. COPAXONE [Suspect]
     Active Substance: GLATIRAMER ACETATE
     Indication: MULTIPLE SCLEROSIS
     Dosage: ??          QUANTITY:1 INJECTION(S);OTHER FREQUENCY:3X WEEK;?
     Route: 030
     Dates: start: 20201216
  2. GABAPENTIN. [Concomitant]
     Active Substance: GABAPENTIN
  3. MODAFINIL. [Concomitant]
     Active Substance: MODAFINIL
  4. SENNA [Concomitant]
     Active Substance: SENNA LEAF\SENNOSIDES\SENNOSIDES A AND B
  5. BUSPIRONE [Concomitant]
     Active Substance: BUSPIRONE HYDROCHLORIDE
  6. DULOXOTINE [Concomitant]
  7. VITAMIN B12 [Concomitant]
     Active Substance: CYANOCOBALAMIN
  8. BOTOX [Concomitant]
     Active Substance: ONABOTULINUMTOXINA
  9. RESTASIS [Concomitant]
     Active Substance: CYCLOSPORINE
  10. TOPIRAMATE. [Concomitant]
     Active Substance: TOPIRAMATE
  11. FIBER [Concomitant]
     Active Substance: PSYLLIUM HUSK
  12. COLACE [Concomitant]
     Active Substance: DOCUSATE SODIUM
  13. BENADRYL [Concomitant]
     Active Substance: DIPHENHYDRAMINE HYDROCHLORIDE
  14. TRAZODONE [Concomitant]
     Active Substance: TRAZODONE HYDROCHLORIDE
  15. ATORVASTATIN [Concomitant]
     Active Substance: ATORVASTATIN
  16. VITAMIN D3 [Concomitant]
     Active Substance: CHOLECALCIFEROL

REACTIONS (8)
  - Product substitution issue [None]
  - Throat tightness [None]
  - Anxiety [None]
  - Agitation [None]
  - Injection related reaction [None]
  - Flushing [None]
  - Heart rate increased [None]
  - Dyspnoea [None]

NARRATIVE: CASE EVENT DATE: 20201216
